FAERS Safety Report 7288261-5 (Version None)
Quarter: 2011Q1

REPORT INFORMATION
  Report Type: 
  Country: None (occurrence: None)
  Receive Date: 20110211
  Receipt Date: 20110204
  Transmission Date: 20110831
  Serious: Yes (Hospitalization, Other)
  Sender: FDA-Public Use
  Company Number: BR-ROCHE-749680

PATIENT
  Sex: Female
  Weight: 67 kg

DRUGS (6)
  1. EXELON [Concomitant]
     Dosage: ONE PATCH A DAY
  2. CALCIUM [Concomitant]
     Dosage: CALCIUM MAGISTRAL FORMULA
  3. OMEPRAZOLE [Concomitant]
     Dosage: INDICATION: STOMACH
  4. PERIDAL [Concomitant]
     Indication: ILL-DEFINED DISORDER
  5. SUSTRATE [Concomitant]
     Dosage: INDICATION: HEART
  6. BONIVA [Suspect]
     Indication: OSTEOPOROSIS
     Dosage: TREATMENT INTERUPPTED
     Route: 065
     Dates: start: 20080101

REACTIONS (7)
  - HYPERTENSION [None]
  - ENCEPHALITIS VIRAL [None]
  - BEDRIDDEN [None]
  - ACTIVITIES OF DAILY LIVING IMPAIRED [None]
  - TRACHEAL DISORDER [None]
  - URINARY TRACT INFECTION [None]
  - LUNG INFECTION [None]
